FAERS Safety Report 7333641-2 (Version None)
Quarter: 2011Q1

REPORT INFORMATION
  Report Type: 
  Country: None (occurrence: None)
  Receive Date: 20110306
  Receipt Date: 20110222
  Transmission Date: 20110831
  Serious: Yes (Hospitalization, Other)
  Sender: FDA-Public Use
  Company Number: US-ELI_LILLY_AND_COMPANY-US201005001454

PATIENT
  Sex: Female
  Weight: 134 kg

DRUGS (4)
  1. HYDROCHLOROTHIAZIDE [Concomitant]
  2. VIT D [Concomitant]
  3. TOPROL-XL [Concomitant]
  4. FORTEO [Suspect]
     Indication: OSTEOPOROSIS
     Dosage: UNK, DAILY (1/D)
     Route: 058

REACTIONS (4)
  - INJECTION SITE PAIN [None]
  - OVERDOSE [None]
  - PELVIC FLOOR REPAIR [None]
  - HYSTERECTOMY [None]
